FAERS Safety Report 21264779 (Version 1)
Quarter: 2022Q3

REPORT INFORMATION
  Report Type: Spontaneous
  Country: US (occurrence: None)
  Receive Date: 20220827
  Receipt Date: 20220827
  Transmission Date: 20221026
  Serious: Yes (Hospitalization)
  Sender: FDA-Public Use
  Company Number: None

PATIENT
  Age: 68 Year
  Sex: Male

DRUGS (1)
  1. METOPROLOL SUCCINATE [Suspect]
     Active Substance: METOPROLOL SUCCINATE
     Indication: Cardiac failure congestive
     Dosage: 100 MG EVERY DAY PO?
     Route: 048
     Dates: start: 20220614, end: 20220621

REACTIONS (6)
  - Bradycardia [None]
  - Fatigue [None]
  - Chest pain [None]
  - Dizziness [None]
  - Dyspnoea [None]
  - Hypertension [None]

NARRATIVE: CASE EVENT DATE: 20220621
